FAERS Safety Report 4775373-0 (Version None)
Quarter: 2005Q3

REPORT INFORMATION
  Report Type: 
  Country: None (occurrence: None)
  Receive Date: 20050920
  Receipt Date: 20050913
  Transmission Date: 20060218
  Serious: Yes (Death)
  Sender: FDA-Public Use
  Company Number: SYN-0047-2005

PATIENT
  Age: 19 Year
  Sex: Male

DRUGS (2)
  1. PAROXETINE (SALT UNSPECIFIED) [Suspect]
     Indication: MAJOR DEPRESSION
     Dosage: 20 MG DAILY ORALLY
     Route: 048
  2. PAROXETINE (SALT UNSPECIFIED) [Suspect]
     Indication: SOCIAL PHOBIA
     Dosage: 20 MG DAILY ORALLY
     Route: 048

REACTIONS (4)
  - BLOOD BILIRUBIN INCREASED [None]
  - DRUG DOSE OMISSION [None]
  - INAPPROPRIATE SCHEDULE OF DRUG ADMINISTRATION [None]
  - LOSS OF CONSCIOUSNESS [None]
